FAERS Safety Report 6832299-6 (Version None)
Quarter: 2010Q3

REPORT INFORMATION
  Report Type: 
  Country: None (occurrence: None)
  Receive Date: 20100712
  Receipt Date: 20100701
  Transmission Date: 20110219
  Serious: Yes (Other)
  Sender: FDA-Public Use
  Company Number: US-BAXTER-2010BH017674

PATIENT
  Age: 47 Year
  Sex: Female

DRUGS (1)
  1. PHENERGAN [Suspect]
     Indication: PRODUCT USED FOR UNKNOWN INDICATION
     Route: 042
     Dates: start: 20080723

REACTIONS (11)
  - BURNING SENSATION [None]
  - CYANOSIS [None]
  - DRY GANGRENE [None]
  - ECCHYMOSIS [None]
  - EXTREMITY NECROSIS [None]
  - HEADACHE [None]
  - ISCHAEMIA [None]
  - PAIN [None]
  - RAYNAUD'S PHENOMENON [None]
  - SENSORY LOSS [None]
  - VOMITING [None]
